FAERS Safety Report 21809813 (Version 1)
Quarter: 2022Q4

REPORT INFORMATION
  Report Type: Spontaneous
  Country: US (occurrence: None)
  Receive Date: 20221230
  Receipt Date: 20221230
  Transmission Date: 20230112
  Serious: No
  Sender: FDA-Public Use
  Company Number: None

PATIENT
  Sex: Female

DRUGS (2)
  1. EPOPROSTENOL [Suspect]
     Active Substance: EPOPROSTENOL
     Indication: Pulmonary arterial hypertension
     Dosage: OTHER QUANTITY : 18NKM;?OTHER FREQUENCY : CONTINUOUS;?
     Route: 042
     Dates: start: 202008
  2. DEVICE [Suspect]
     Active Substance: DEVICE

REACTIONS (4)
  - Headache [None]
  - Flushing [None]
  - Device alarm issue [None]
  - Blood potassium decreased [None]
